FAERS Safety Report 12849196 (Version 1)
Quarter: 2016Q4

REPORT INFORMATION
  Report Type: Spontaneous
  Country: CN (occurrence: CN)
  Receive Date: 20161014
  Receipt Date: 20161014
  Transmission Date: 20170207
  Serious: Yes (Hospitalization)
  Sender: FDA-Public Use
  Company Number: CN-ELI_LILLY_AND_COMPANY-CN201610003049

PATIENT
  Sex: Male
  Weight: 78 kg

DRUGS (4)
  1. HUMULIN 70/30 [Suspect]
     Active Substance: INSULIN HUMAN
     Indication: DIABETES MELLITUS
     Dosage: 23 U, EACH MORNING
     Route: 058
     Dates: start: 2004
  2. GLIMEPIRIDE. [Concomitant]
     Active Substance: GLIMEPIRIDE
  3. MELBIN                             /00082702/ [Concomitant]
     Active Substance: METFORMIN HYDROCHLORIDE
  4. HUMULIN 70/30 [Suspect]
     Active Substance: INSULIN HUMAN
     Dosage: 21 U, EACH EVENING
     Route: 058
     Dates: start: 2004

REACTIONS (2)
  - Cerebral infarction [Unknown]
  - Cataract [Unknown]

NARRATIVE: CASE EVENT DATE: 2007
